FAERS Safety Report 9310465 (Version 8)
Quarter: 2017Q3

REPORT INFORMATION
  Report Type: Spontaneous
  Country: US (occurrence: US)
  Receive Date: 20130527
  Receipt Date: 20170712
  Transmission Date: 20171128
  Serious: Yes (Other)
  Sender: FDA-Public Use
  Company Number: US-PFIZER INC-2013158816

PATIENT
  Age: 80 Year
  Sex: Female

DRUGS (2)
  1. XALATAN [Suspect]
     Active Substance: LATANOPROST
     Indication: CATARACT
     Dosage: UNK
  2. XALATAN [Suspect]
     Active Substance: LATANOPROST
     Indication: GLAUCOMA
     Dosage: UNK

REACTIONS (14)
  - Malaise [Unknown]
  - Vomiting [Unknown]
  - Thrombosis [Unknown]
  - Ocular vascular disorder [Unknown]
  - Cataract [Unknown]
  - Gait disturbance [Unknown]
  - Vein disorder [Unknown]
  - Blindness unilateral [Unknown]
  - Dyspnoea [Unknown]
  - Drug tolerance [Unknown]
  - Nausea [Unknown]
  - Eye operation complication [Unknown]
  - Renal failure [Unknown]
  - Visual impairment [Unknown]
